FAERS Safety Report 23242317 (Version 1)
Quarter: 2023Q4

REPORT INFORMATION
  Report Type: Spontaneous
  Country: US (occurrence: US)
  Receive Date: 20231129
  Receipt Date: 20231129
  Transmission Date: 20240110
  Serious: No
  Sender: FDA-Public Use
  Company Number: US-GENMAB-2023-01554

PATIENT
  Sex: Female

DRUGS (2)
  1. EPKINLY [Suspect]
     Active Substance: EPCORITAMAB-BYSP
     Dosage: UNK UNK, WEEKLY (FIRST FULL DOSE)
     Route: 058
  2. EPKINLY [Suspect]
     Active Substance: EPCORITAMAB-BYSP
     Dosage: UNK UNK, WEEKLY  (SECOND FULL DOSE)
     Route: 058

REACTIONS (2)
  - Injection site rash [Unknown]
  - Rash pustular [Unknown]
